FAERS Safety Report 4850513-3 (Version None)
Quarter: 2005Q4

REPORT INFORMATION
  Report Type: 
  Country: None (occurrence: None)
  Receive Date: 20051208
  Receipt Date: 20051129
  Transmission Date: 20060501
  Serious: Yes (Other)
  Sender: FDA-Public Use
  Company Number: 2005163401

PATIENT
  Age: 90 Year
  Sex: Male
  Weight: 54.4316 kg

DRUGS (5)
  1. GEODON [Suspect]
     Indication: ABNORMAL BEHAVIOUR
     Dosage: 40 MG (1 IN 1 D),
     Dates: start: 20050101
  2. GEODON [Suspect]
     Indication: AGITATION
     Dosage: 40 MG (1 IN 1 D),
     Dates: start: 20050101
  3. FLUNITRAZEPAM (FLUNITRAZEPAM) [Concomitant]
  4. VITAMINS (VITAMINS) [Concomitant]
  5. ASPIRIN [Concomitant]

REACTIONS (13)
  - AGITATION [None]
  - BALANCE DISORDER [None]
  - COGNITIVE DISORDER [None]
  - CONFUSIONAL STATE [None]
  - DIZZINESS [None]
  - DYSSTASIA [None]
  - FALL [None]
  - GAIT DISTURBANCE [None]
  - HALLUCINATION [None]
  - MOTOR DYSFUNCTION [None]
  - NERVOUS SYSTEM DISORDER [None]
  - ORTHOSTATIC HYPOTENSION [None]
  - VASCULAR DEMENTIA [None]
